FAERS Safety Report 7500925-4 (Version None)
Quarter: 2011Q2

REPORT INFORMATION
  Report Type: 
  Country: None (occurrence: None)
  Receive Date: 20110524
  Receipt Date: 20110517
  Transmission Date: 20111010
  Serious: Yes (Other)
  Sender: FDA-Public Use
  Company Number: US-US-EMD SERONO, INC.-7060516

PATIENT
  Sex: Male

DRUGS (7)
  1. MULTI-VITAMIN [Concomitant]
  2. TRILIPIX [Concomitant]
     Indication: BLOOD CHOLESTEROL
  3. ASPIRIN [Concomitant]
  4. REBIF [Suspect]
     Indication: MULTIPLE SCLEROSIS
     Route: 058
     Dates: start: 20090220
  5. DICYCLOMINE [Concomitant]
     Indication: MUSCLE SPASTICITY
  6. TRILIPIX [Concomitant]
     Indication: LIPIDS
  7. SIMVASTATIN [Concomitant]

REACTIONS (2)
  - BLOOD TESTOSTERONE DECREASED [None]
  - LABYRINTHINE FISTULA [None]
